FAERS Safety Report 4777580-X (Version None)
Quarter: 2005Q3

REPORT INFORMATION
  Report Type: 
  Country: None (occurrence: None)
  Receive Date: 20050921
  Receipt Date: 20050908
  Transmission Date: 20060218
  Serious: Yes (Other)
  Sender: FDA-Public Use
  Company Number: 217604

PATIENT
  Age: 15 Year
  Sex: Female
  Weight: 65.6 kg

DRUGS (5)
  1. NUTROPIN AQ [Suspect]
     Indication: HYPOPITUITARISM
     Dates: start: 20040609
  2. SYNTHROID [Concomitant]
  3. DDAVP (DESMOPRESSION ACETATE) [Concomitant]
  4. PREDNISONE [Concomitant]
  5. VIVELLE-DOT [Concomitant]

REACTIONS (4)
  - ARTHRALGIA [None]
  - JOINT SWELLING [None]
  - OEDEMA PERIPHERAL [None]
  - PAIN IN EXTREMITY [None]
